FAERS Safety Report 19835549 (Version 1)
Quarter: 2021Q3

REPORT INFORMATION
  Report Type: Spontaneous
  Country: CN (occurrence: CN)
  Receive Date: 20210914
  Receipt Date: 20210914
  Transmission Date: 20211014
  Serious: Yes (Hospitalization, Other)
  Sender: FDA-Public Use
  Company Number: CN-PFIZER INC-202101130932

PATIENT
  Age: 56 Year
  Sex: Female

DRUGS (1)
  1. XALKORI [Suspect]
     Active Substance: CRIZOTINIB
     Dosage: UNK
     Route: 048
     Dates: start: 20191011

REACTIONS (22)
  - Hypoacusis [Not Recovered/Not Resolved]
  - Dizziness [Recovering/Resolving]
  - Vitreous floaters [Unknown]
  - High density lipoprotein increased [Unknown]
  - Vertigo [Unknown]
  - Cough [Not Recovered/Not Resolved]
  - Sinus bradycardia [Unknown]
  - Oedema peripheral [Unknown]
  - Tinnitus [Recovering/Resolving]
  - Visual impairment [Not Recovered/Not Resolved]
  - Peripheral swelling [Unknown]
  - Blood creatine phosphokinase increased [Unknown]
  - Chronic gastritis [Unknown]
  - Diarrhoea [Recovering/Resolving]
  - Blood creatinine increased [Unknown]
  - Asthenia [Unknown]
  - Hypoaesthesia [Recovered/Resolved]
  - Burning sensation [Recovered/Resolved]
  - Blood lactate dehydrogenase increased [Unknown]
  - Viral hepatitis carrier [Unknown]
  - Vomiting [Unknown]
  - Neutrophil percentage decreased [Unknown]

NARRATIVE: CASE EVENT DATE: 2019
